FAERS Safety Report 22348739 (Version 1)
Quarter: 2023Q2

REPORT INFORMATION
  Report Type: Spontaneous
  Country: IN (occurrence: IN)
  Receive Date: 20230522
  Receipt Date: 20230522
  Transmission Date: 20230721
  Serious: Yes (Death, Other)
  Sender: FDA-Public Use
  Company Number: IN-STRIDES ARCOLAB LIMITED-2023SP007386

PATIENT
  Age: 27 Year
  Sex: Female

DRUGS (22)
  1. PREDNISOLONE [Suspect]
     Active Substance: PREDNISOLONE
     Indication: B-cell type acute leukaemia
     Dosage: UNK, AS A PART OF BFM-95 PROTOCOL
     Route: 065
  2. DOXORUBICIN [Suspect]
     Active Substance: DOXORUBICIN
     Indication: B-cell type acute leukaemia
     Dosage: UNK,AS A PART OF BFM-95 PROTOCOL
     Route: 065
  3. DOXORUBICIN [Suspect]
     Active Substance: DOXORUBICIN
     Dosage: UNK, AS PER HYPERCVAD REGIMEN
     Route: 065
  4. METHOTREXATE [Suspect]
     Active Substance: METHOTREXATE
     Indication: B-cell type acute leukaemia
     Dosage: UNK,AS A PART OF BFM-95 PROTOCOL
     Route: 065
  5. DEXAMETHASONE [Suspect]
     Active Substance: DEXAMETHASONE
     Indication: B-cell type acute leukaemia
     Dosage: UNK,AS A PART OF BFM-95 PROTOCOL
     Route: 065
  6. DEXAMETHASONE [Suspect]
     Active Substance: DEXAMETHASONE
     Dosage: UNK, AS PER HYPERCVAD REGIMEN
     Route: 065
  7. DEXAMETHASONE [Suspect]
     Active Substance: DEXAMETHASONE
     Dosage: UNK, AS A PART OF BED REGIMEN
     Route: 065
  8. ETOPOSIDE [Suspect]
     Active Substance: ETOPOSIDE
     Indication: B-cell type acute leukaemia
     Dosage: UNK,AS A PART OF BED REGIMEN
     Route: 065
  9. VINCRISTINE [Suspect]
     Active Substance: VINCRISTINE
     Indication: B-cell type acute leukaemia
     Dosage: UNK, AS A PART OF BFM-95 PROTOCOL
     Route: 065
  10. VINCRISTINE [Suspect]
     Active Substance: VINCRISTINE
     Dosage: UNK, AS PER HYPERCVAD REGIMEN
     Route: 065
  11. DAUNORUBICIN [Suspect]
     Active Substance: DAUNORUBICIN
     Indication: B-cell type acute leukaemia
     Dosage: UNK,AS A PART OF BFM-95 PROTOCOL
     Route: 065
  12. ASPARAGINASE [Suspect]
     Active Substance: ASPARAGINASE
     Indication: B-cell type acute leukaemia
     Dosage: UNK, AS A PART OF BFM-95 PROTOCOL
     Route: 065
  13. THIOGUANINE [Suspect]
     Active Substance: THIOGUANINE
     Indication: B-cell type acute leukaemia
     Dosage: UNK, AS A PART OF BFM-95 PROTOCOL
     Route: 065
  14. MERCAPTOPURINE [Suspect]
     Active Substance: MERCAPTOPURINE
     Indication: B-cell type acute leukaemia
     Dosage: UNK,AS A PART OF BFM-95 PROTOCOL
     Route: 065
  15. CYCLOPHOSPHAMIDE [Suspect]
     Active Substance: CYCLOPHOSPHAMIDE
     Indication: B-cell type acute leukaemia
     Dosage: UNK,AS A PART OF BFM-95 PROTOCOL
     Route: 065
  16. CYCLOPHOSPHAMIDE [Suspect]
     Active Substance: CYCLOPHOSPHAMIDE
     Dosage: UNK, AS PER HYPERCVAD REGIMEN
     Route: 065
  17. MESNA [Suspect]
     Active Substance: MESNA
     Indication: B-cell type acute leukaemia
     Dosage: UNK, AS A PART OF BFM-95 PROTOCOL
     Route: 065
  18. LEUCOVORIN [Suspect]
     Active Substance: LEUCOVORIN
     Indication: B-cell type acute leukaemia
     Dosage: UNK, AS A PART OF BFM-95 PROTOCOL
     Route: 065
  19. CYTARABINE [Suspect]
     Active Substance: CYTARABINE
     Indication: B-cell type acute leukaemia
     Dosage: UNK, AS A PART OF BFM-95 PROTOCOL
     Route: 065
  20. BORTEZOMIB [Suspect]
     Active Substance: BORTEZOMIB
     Indication: B-cell type acute leukaemia
     Dosage: UNK, AS A PART OF BED REGIMEN
     Route: 065
  21. INOTUZUMAB OZOGAMICIN [Suspect]
     Active Substance: INOTUZUMAB OZOGAMICIN
     Indication: B-cell type acute leukaemia
     Dosage: 0.8 MILLIGRAM/SQ. METER, CYCLICAL (ON DAY 1) (IN A 21 TO 28 DAY CYCLE) (RECEIVED 3 CYCLES)
     Route: 065
  22. INOTUZUMAB OZOGAMICIN [Suspect]
     Active Substance: INOTUZUMAB OZOGAMICIN
     Dosage: 0.5 MILLIGRAM/SQ. METER, CYCLICAL (ON DAYS 8 AND 15) (IN A 21 TO 28 DAY CYCLE) (RECEIVED 3 CYCLES)
     Route: 065

REACTIONS (3)
  - Disease progression [Fatal]
  - Treatment failure [Fatal]
  - Off label use [Unknown]
